FAERS Safety Report 4332728-6 (Version None)
Quarter: 2004Q1

REPORT INFORMATION
  Report Type: 
  Country: None (occurrence: None)
  Receive Date: 20040330
  Receipt Date: 20040318
  Transmission Date: 20041129
  Serious: Yes (Life-Threatening, Disabling)
  Sender: FDA-Public Use
  Company Number: HQWYE986418MAR04

PATIENT
  Age: 54 Year
  Sex: Male

DRUGS (1)
  1. CORDARONE [Suspect]
     Dosage: ORAL
     Route: 048

REACTIONS (1)
  - NEPHROPATHY [None]
